FAERS Safety Report 8995321 (Version 1)
Quarter: 2013Q1

REPORT INFORMATION
  Report Type: Spontaneous
  Country: US (occurrence: US)
  Receive Date: 20130103
  Receipt Date: 20130103
  Transmission Date: 20140127
  Serious: Yes (Hospitalization, Other)
  Sender: FDA-Public Use
  Company Number: US-ELI_LILLY_AND_COMPANY-US201212008217

PATIENT
  Age: 61 Year
  Sex: Female

DRUGS (30)
  1. EFFIENT [Suspect]
     Indication: ANTIPLATELET THERAPY
     Dosage: 10 MG, QD
     Route: 065
     Dates: start: 20100625, end: 20120125
  2. EFFIENT [Suspect]
     Dosage: 10 MG, QD
     Route: 065
     Dates: start: 20120922, end: 20121210
  3. ASPIRIN [Concomitant]
     Indication: ANTIPLATELET THERAPY
     Dosage: 325 MG, QD
     Dates: start: 20100804, end: 20121210
  4. CARVEDILOL [Concomitant]
  5. LOSARTAN [Concomitant]
  6. SIMVASTATIN [Concomitant]
  7. EZETIMIBE [Concomitant]
     Dosage: 10 MG, QD
     Dates: start: 2010
  8. ISOSORBIDE MONONITRATE [Concomitant]
     Dosage: 60 MG, QD
     Dates: start: 2010, end: 20120920
  9. PAROXETINE [Concomitant]
     Dosage: 20 MG, QD
     Dates: start: 2000, end: 20101219
  10. PAROXETINE [Concomitant]
     Dosage: 40 MG, QD
     Dates: start: 20101220, end: 20111101
  11. PAROXETINE [Concomitant]
     Dosage: 20 MG, QD
     Dates: start: 20111102
  12. METFORMIN [Concomitant]
     Dosage: 500 MG, BID
     Dates: start: 2005, end: 20101220
  13. SITAGLIPTIN PHOSPHATE [Concomitant]
     Dosage: 100 MG, QD
     Dates: start: 20100322, end: 20101220
  14. RANITIDINE [Concomitant]
     Dosage: 150 MG, BID
     Dates: start: 2004
  15. ALBUTEROL [Concomitant]
     Dosage: UNK, PRN
     Dates: start: 2000, end: 201201
  16. CETIRIZINE [Concomitant]
     Dosage: 2 DF, QD
     Dates: start: 2000, end: 20110129
  17. INSULIN DETEMIR [Concomitant]
     Dosage: UNK, QD
     Route: 065
     Dates: start: 2000, end: 20101220
  18. INSULIN DETEMIR [Concomitant]
     Dosage: UNK, QD
     Dates: start: 20101221
  19. GLIPIZIDE [Concomitant]
     Dosage: 5 MG, BID
     Dates: start: 2004, end: 20101220
  20. PRAVASTATIN [Concomitant]
     Dosage: 80 MG, QD
     Dates: start: 20101025, end: 20120920
  21. HUMULIN R [Concomitant]
     Dosage: UNK, TID
     Dates: start: 20101220, end: 20110920
  22. BECLOMETHASONE [Concomitant]
     Dosage: UNK
     Dates: start: 20101220
  23. FEXOFENADINE [Concomitant]
     Dosage: UNK, BID
     Dates: start: 20101220
  24. COUMADIN [Concomitant]
     Dosage: UNK, QD
     Dates: start: 20110918, end: 20120701
  25. NOVOLOG [Concomitant]
     Dosage: UNK, PRN
     Dates: start: 20110921
  26. TIMOLOL MALEATE [Concomitant]
     Dosage: 2 DF, BID
  27. METOPROLOL [Concomitant]
     Dosage: 50 MG, BID
     Dates: start: 20120924, end: 20121211
  28. METOPROLOL [Concomitant]
     Dosage: 25 MG, BID
     Dates: start: 20121212
  29. ATORVASTATIN [Concomitant]
     Dosage: 80 MG, QD
     Dates: start: 20120921
  30. LISINOPRIL [Concomitant]
     Dosage: 20 MG, QD
     Dates: start: 20120922

REACTIONS (2)
  - Fall [Unknown]
  - Subdural haematoma [Recovered/Resolved]
